FAERS Safety Report 15925060 (Version 1)
Quarter: 2019Q1

REPORT INFORMATION
  Report Type: Spontaneous
  Country: US (occurrence: US)
  Receive Date: 20190206
  Receipt Date: 20190206
  Transmission Date: 20190417
  Serious: Yes (Hospitalization)
  Sender: FDA-Public Use
  Company Number: None

PATIENT
  Sex: Male

DRUGS (3)
  1. CENTRUM [Concomitant]
     Active Substance: VITAMINS
  2. XELJANZ [Suspect]
     Active Substance: TOFACITINIB CITRATE
     Indication: RHEUMATOID ARTHRITIS
     Route: 048
     Dates: start: 20171107
  3. PREDNISONE, CENTRUM [Concomitant]

REACTIONS (3)
  - Pneumonia [None]
  - Disease complication [None]
  - Influenza [None]
